FAERS Safety Report 6648258-2 (Version None)
Quarter: 2010Q1

REPORT INFORMATION
  Report Type: 
  Country: None (occurrence: None)
  Receive Date: 20100324
  Receipt Date: 20100318
  Transmission Date: 20100710
  Serious: Yes (Other)
  Sender: FDA-Public Use
  Company Number: AT-ROCHE-667323

PATIENT
  Sex: Female
  Weight: 88 kg

DRUGS (4)
  1. TRASTUZUMAB [Suspect]
     Indication: BREAST CANCER
     Route: 042
     Dates: start: 20090904, end: 20090904
  2. DOCETAXEL [Suspect]
     Indication: BREAST CANCER
     Route: 042
     Dates: start: 20090904, end: 20090904
  3. DOXORUBICIN HCL [Suspect]
     Indication: BREAST CANCER
     Dosage: FROM CYCLE 1-4
     Route: 065
  4. CYCLOPHOSPHAMIDE [Suspect]
     Indication: BREAST CANCER
     Dosage: FROM CYCLE 1-4
     Route: 065

REACTIONS (1)
  - ERYTHEMA MULTIFORME [None]
